FAERS Safety Report 7712776-6 (Version None)
Quarter: 2011Q3

REPORT INFORMATION
  Report Type: 
  Country: None (occurrence: None)
  Receive Date: 20110826
  Receipt Date: 20110818
  Transmission Date: 20111222
  Serious: Yes (Other)
  Sender: FDA-Public Use
  Company Number: US-GLAXOSMITHKLINE-A0941993A

PATIENT
  Age: 45 Year
  Sex: Male

DRUGS (2)
  1. LAMICTAL [Suspect]
     Indication: BIPOLAR DISORDER
     Dosage: 100MG PER DAY
     Route: 048
     Dates: start: 20100101
  2. PRISTIQ [Concomitant]

REACTIONS (3)
  - APHASIA [None]
  - THINKING ABNORMAL [None]
  - DISTURBANCE IN ATTENTION [None]
